FAERS Safety Report 6303428-8 (Version None)
Quarter: 2009Q3

REPORT INFORMATION
  Report Type: 
  Country: None (occurrence: None)
  Receive Date: 20090810
  Receipt Date: 20090729
  Transmission Date: 20100115
  Serious: Yes (Other)
  Sender: FDA-Public Use
  Company Number: FR-PFIZER INC-2009155771

PATIENT
  Age: 39 Year

DRUGS (2)
  1. ARTHROTEC [Suspect]
     Indication: PAIN
     Dosage: 2 DF, 1X/DAY
     Route: 048
     Dates: start: 20090125
  2. ARTHROTEC [Suspect]
     Indication: MUSCULOSKELETAL PAIN

REACTIONS (5)
  - FORMICATION [None]
  - PRURITUS [None]
  - RASH GENERALISED [None]
  - SUFFOCATION FEELING [None]
  - URTICARIA [None]
